FAERS Safety Report 17364676 (Version 1)
Quarter: 2020Q1

REPORT INFORMATION
  Report Type: Report from Study
  Country: US (occurrence: US)
  Receive Date: 20200204
  Receipt Date: 20200204
  Transmission Date: 20200409
  Serious: Yes (Hospitalization, Other)
  Sender: FDA-Public Use
  Company Number: US-ROCHE-2463038

PATIENT
  Age: 55 Year
  Sex: Female
  Weight: 83.99 kg

DRUGS (20)
  1. METFORMIN [Concomitant]
     Active Substance: METFORMIN HYDROCHLORIDE
     Route: 065
  2. RITUXAN [Suspect]
     Active Substance: RITUXIMAB
     Route: 042
     Dates: start: 20191115
  3. OMEPRAZOLE. [Concomitant]
     Active Substance: OMEPRAZOLE
  4. RITUXAN [Suspect]
     Active Substance: RITUXIMAB
     Indication: RELAPSING-REMITTING MULTIPLE SCLEROSIS
     Dosage: NO
     Route: 042
     Dates: start: 2015
  5. RITUXAN [Suspect]
     Active Substance: RITUXIMAB
     Route: 042
     Dates: start: 20190111
  6. BACLOFEN. [Concomitant]
     Active Substance: BACLOFEN
  7. ESCITALOPRAM [Concomitant]
     Active Substance: ESCITALOPRAM OXALATE
  8. GLIPIZIDE. [Concomitant]
     Active Substance: GLIPIZIDE
  9. RITUXAN [Suspect]
     Active Substance: RITUXIMAB
     Dosage: NO
     Route: 042
     Dates: end: 2017
  10. OCREVUS [Suspect]
     Active Substance: OCRELIZUMAB
     Indication: RELAPSING-REMITTING MULTIPLE SCLEROSIS
     Dosage: SECOND DOSE ON 15/NOV/2020
     Route: 042
     Dates: start: 20191101
  11. CLONAZEPAM. [Concomitant]
     Active Substance: CLONAZEPAM
  12. DICYCLOMINE [Concomitant]
     Active Substance: DICYCLOMINE HYDROCHLORIDE
  13. VITAMIN D3 [Concomitant]
     Active Substance: CHOLECALCIFEROL
  14. MAGNESIUM [Concomitant]
     Active Substance: MAGNESIUM
  15. PRAMIPEXOLE. [Concomitant]
     Active Substance: PRAMIPEXOLE
  16. TOPAMAX [Concomitant]
     Active Substance: TOPIRAMATE
  17. VALACYCLOVIR [Concomitant]
     Active Substance: VALACYCLOVIR HYDROCHLORIDE
  18. ALBUTEROL SULFATE. [Concomitant]
     Active Substance: ALBUTEROL SULFATE
  19. DALFAMPRIDINE. [Concomitant]
     Active Substance: DALFAMPRIDINE
  20. NEURONTIN [Concomitant]
     Active Substance: GABAPENTIN

REACTIONS (27)
  - Eye pain [Recovered/Resolved]
  - Musculoskeletal stiffness [Not Recovered/Not Resolved]
  - Immunodeficiency [Not Recovered/Not Resolved]
  - Fall [Unknown]
  - Decubitus ulcer [Recovering/Resolving]
  - Pneumonia legionella [Recovering/Resolving]
  - Neoplasm [Unknown]
  - Gait disturbance [Not Recovered/Not Resolved]
  - Paraesthesia [Unknown]
  - Diabetic ketoacidosis [Not Recovered/Not Resolved]
  - Loss of consciousness [Recovered/Resolved]
  - Anxiety [Unknown]
  - Gait disturbance [Not Recovered/Not Resolved]
  - Weight decreased [Not Recovered/Not Resolved]
  - Lhermitte^s sign [Not Recovered/Not Resolved]
  - Pneumonia aspiration [Recovering/Resolving]
  - Septic shock [Recovering/Resolving]
  - Hypoaesthesia [Unknown]
  - Oral herpes [Recovered/Resolved]
  - Optic neuritis [Unknown]
  - Photopsia [Recovered/Resolved]
  - Adverse drug reaction [Recovered/Resolved]
  - Hallucination [Not Recovered/Not Resolved]
  - Medical induction of coma [Unknown]
  - Insomnia [Not Recovered/Not Resolved]
  - Off label use [Recovered/Resolved]
  - Intentional product use issue [Unknown]

NARRATIVE: CASE EVENT DATE: 2015
